FAERS Safety Report 6121118-1 (Version None)
Quarter: 2009Q1

REPORT INFORMATION
  Report Type: 
  Country: None (occurrence: None)
  Receive Date: 20090317
  Receipt Date: 20090310
  Transmission Date: 20090719
  Serious: Yes (Other)
  Sender: FDA-Public Use
  Company Number: A0772335A

PATIENT
  Sex: Male

DRUGS (2)
  1. LOVAZA [Suspect]
     Indication: BLOOD TRIGLYCERIDES INCREASED
     Route: 048
     Dates: start: 20081101
  2. NO CONCURRENT MEDICATION [Concomitant]

REACTIONS (7)
  - GINGIVAL BLEEDING [None]
  - GINGIVAL DISORDER [None]
  - GINGIVAL ERYTHEMA [None]
  - GINGIVAL HYPERPLASIA [None]
  - GINGIVAL SWELLING [None]
  - GINGIVITIS [None]
  - HAEMORRHAGE [None]
